FAERS Safety Report 9176754 (Version 2)
Quarter: 2013Q3

REPORT INFORMATION
  Report Type: Spontaneous
  Country: FR (occurrence: FR)
  Receive Date: 20130321
  Receipt Date: 20130730
  Transmission Date: 20140515
  Serious: Yes (Other)
  Sender: FDA-Public Use
  Company Number: FR-PFIZER INC-2013089819

PATIENT
  Age: 28 Year
  Sex: Female

DRUGS (2)
  1. ZOLOFT [Suspect]
     Indication: OBSESSIVE-COMPULSIVE DISORDER
     Dosage: 25 MG, 1X/DAY
     Route: 048
     Dates: start: 20130121, end: 20130128
  2. ZOLOFT [Suspect]
     Dosage: 50 MG, 1X/DAY
     Route: 048
     Dates: start: 20130129, end: 20130228

REACTIONS (2)
  - Pupils unequal [Recovered/Resolved]
  - Intraocular pressure increased [Recovered/Resolved]
